FAERS Safety Report 13644654 (Version 1)
Quarter: 2017Q2

REPORT INFORMATION
  Report Type: Spontaneous
  Country: US (occurrence: US)
  Receive Date: 20170612
  Receipt Date: 20170612
  Transmission Date: 20170830
  Serious: Yes (Other)
  Sender: FDA-Public Use
  Company Number: US-ROCHE-654194

PATIENT
  Age: 70 Year
  Sex: Female

DRUGS (2)
  1. XELODA [Suspect]
     Active Substance: CAPECITABINE
     Indication: BREAST CANCER METASTATIC
     Dosage: TAKEN FOR 2 WEEKS, STRENGTH: 500 MG
     Route: 065
  2. XELODA [Suspect]
     Active Substance: CAPECITABINE
     Dosage: TAKEN FOR 2 WEEKS, THE PATIENT RECEIVED 500 MG AND 150 MG TABLETS
     Route: 065

REACTIONS (1)
  - Angioedema [Recovering/Resolving]
